FAERS Safety Report 4773935-8 (Version None)
Quarter: 2005Q3

REPORT INFORMATION
  Report Type: 
  Country: None (occurrence: None)
  Receive Date: 20050919
  Receipt Date: 20050909
  Transmission Date: 20060218
  Serious: Yes (Other)
  Sender: FDA-Public Use
  Company Number: KII-2005-0018543

PATIENT
  Age: 42 Year
  Sex: Male

DRUGS (3)
  1. OXYCONTIN [Suspect]
     Indication: INTENTIONAL MISUSE
     Dosage: SEE TEXT
  2. HEROIN (DIAMORPHINE) [Suspect]
     Indication: INTENTIONAL MISUSE
     Dosage: INTRAVENOUS
     Route: 042
  3. COCAINE (COCAINE) [Suspect]
     Indication: INTENTIONAL MISUSE
     Dosage: SEE TEXT

REACTIONS (3)
  - BLOOD CREATINE PHOSPHOKINASE ABNORMAL [None]
  - COMA [None]
  - POLYSUBSTANCE ABUSE [None]
